APPROVED DRUG PRODUCT: DAYVIGO
Active Ingredient: LEMBOREXANT
Strength: 10MG
Dosage Form/Route: TABLET;ORAL
Application: N212028 | Product #002
Applicant: EISAI INC
Approved: Apr 7, 2020 | RLD: Yes | RS: Yes | Type: RX

PATENTS:
Patent 10188652 | Expires: Oct 21, 2035
Patent 8268848 | Expires: Sep 20, 2031
Patent 10702529 | Expires: Oct 21, 2035
Patent 11026944 | Expires: Oct 21, 2035

EXCLUSIVITY:
Code: M-293 | Date: Apr 20, 2026